FAERS Safety Report 24078800 (Version 1)
Quarter: 2024Q3

REPORT INFORMATION
  Report Type: Spontaneous
  Country: US (occurrence: US)
  Receive Date: 20240711
  Receipt Date: 20240711
  Transmission Date: 20241017
  Serious: No
  Sender: NOVARTIS
  Company Number: US-002147023-NVSC2024US142914

PATIENT

DRUGS (1)
  1. COSENTYX [Suspect]
     Active Substance: SECUKINUMAB
     Indication: Hidradenitis
     Dosage: UNK
     Route: 065

REACTIONS (5)
  - Dermatitis acneiform [Unknown]
  - Influenza like illness [Unknown]
  - Acne [Unknown]
  - Diarrhoea [Unknown]
  - Hidradenitis [Unknown]
